FAERS Safety Report 5944022-8 (Version None)
Quarter: 2008Q4

REPORT INFORMATION
  Report Type: 
  Country: None (occurrence: None)
  Receive Date: 20081106
  Receipt Date: 20081029
  Transmission Date: 20090506
  Serious: Yes (Life-Threatening, Hospitalization, Other)
  Sender: FDA-Public Use
  Company Number: BR-TYCO HEALTHCARE/MALLINCKRODT-T200801845

PATIENT

DRUGS (1)
  1. OPTIRAY 300 [Suspect]
     Indication: COMPUTERISED TOMOGRAM
     Dosage: 120 ML, UNK
     Route: 042
     Dates: start: 20080913, end: 20080913

REACTIONS (5)
  - ANGIOEDEMA [None]
  - CARDIAC ARREST [None]
  - CONVULSION [None]
  - DYSPNOEA [None]
  - LARYNGEAL OEDEMA [None]
